FAERS Safety Report 25382693 (Version 4)
Quarter: 2025Q2

REPORT INFORMATION
  Report Type: Report from Study
  Country: JP (occurrence: JP)
  Receive Date: 20250601
  Receipt Date: 20250627
  Transmission Date: 20250717
  Serious: Yes (Other)
  Sender: TAKEDA
  Company Number: JP-TAKEDA-2025TJP000941

PATIENT
  Age: 21 Year
  Sex: Female

DRUGS (3)
  1. ADAMTS13, RECOMBINANT-KRHN [Suspect]
     Active Substance: ADAMTS13, RECOMBINANT-KRHN
     Indication: Congenital thrombotic thrombocytopenic purpura
     Dosage: 3000 INTERNATIONAL UNIT, Q2WEEKS
     Dates: start: 20250107
  2. ADAMTS13, RECOMBINANT-KRHN [Suspect]
     Active Substance: ADAMTS13, RECOMBINANT-KRHN
     Dosage: 1500 INTERNATIONAL UNIT, Q2WEEKS
     Dates: start: 20250430, end: 20250516
  3. ADAMTS13, RECOMBINANT-KRHN [Suspect]
     Active Substance: ADAMTS13, RECOMBINANT-KRHN
     Dosage: 3000 INTERNATIONAL UNIT, 1/WEEK

REACTIONS (5)
  - Thrombocytopenia [Not Recovered/Not Resolved]
  - Menstruation delayed [Recovered/Resolved]
  - Protein urine present [Unknown]
  - Haematuria [Unknown]
  - Dizziness [Unknown]

NARRATIVE: CASE EVENT DATE: 20250121
